FAERS Safety Report 4956201-7 (Version None)
Quarter: 2006Q1

REPORT INFORMATION
  Report Type: 
  Country: None (occurrence: None)
  Receive Date: 20060329
  Receipt Date: 20060310
  Transmission Date: 20060701
  Serious: Yes (Hospitalization, Other)
  Sender: FDA-Public Use
  Company Number: JP-ABBOTT-06P-087-0327548-00

PATIENT
  Age: 65 Year
  Sex: Male

DRUGS (8)
  1. CEFZON [Suspect]
     Indication: DRUG USE FOR UNKNOWN INDICATION
     Route: 048
  2. WARFARIN [Suspect]
     Indication: DRUG USE FOR UNKNOWN INDICATION
     Dosage: REGIMEN # 1
     Route: 048
  3. VASOLAN [Suspect]
     Indication: DRUG USE FOR UNKNOWN INDICATION
     Route: 048
  4. TAKEPRON CAPSULES [Suspect]
     Indication: DRUG USE FOR UNKNOWN INDICATION
     Dosage: REGIMEN # 1
     Route: 048
  5. BERAPROST SODIUM [Suspect]
     Indication: DRUG USE FOR UNKNOWN INDICATION
     Route: 048
  6. ACETYLSALICYLIC ACID SRT [Suspect]
     Indication: DRUG USE FOR UNKNOWN INDICATION
     Dosage: REGIMEN # 1
     Route: 048
  7. TICLOPIDINE HYDROCHLORIDE [Suspect]
     Indication: DRUG USE FOR UNKNOWN INDICATION
     Dosage: REGIMEN # 1
     Route: 048
  8. IMIDAPRIL HYDROCHLORIDE [Suspect]
     Indication: DRUG USE FOR UNKNOWN INDICATION
     Dosage: REGIMEN # 1
     Route: 048

REACTIONS (3)
  - ERYTHEMA [None]
  - STEVENS-JOHNSON SYNDROME [None]
  - TOXIC EPIDERMAL NECROLYSIS [None]
